FAERS Safety Report 10005275 (Version 4)
Quarter: 2014Q2

REPORT INFORMATION
  Report Type: Report from Study
  Country: US (occurrence: US)
  Receive Date: 20140312
  Receipt Date: 20140414
  Transmission Date: 20141212
  Serious: No
  Sender: FDA-Public Use
  Company Number: PHEH2014US004957

PATIENT
  Sex: Male

DRUGS (3)
  1. EXFORGE HCT [Suspect]
     Indication: HYPERTENSION
     Dosage: 1 DF (VALS 160 MG / AMLO 5 MG / HYDR 25 MG), QD
     Dates: start: 201309
  2. PROSTATIN [Concomitant]
     Dosage: 40 MG, QD
     Route: 048
     Dates: start: 201309
  3. JANUMET [Concomitant]
     Dosage: 1 DF (METF 1000 MG / SITA 50 MG), BID
     Route: 048
     Dates: start: 201309

REACTIONS (1)
  - Diabetes mellitus inadequate control [Unknown]
